FAERS Safety Report 15278246 (Version 2)
Quarter: 2019Q1

REPORT INFORMATION
  Report Type: Report from Study
  Country: JP (occurrence: JP)
  Receive Date: 20180814
  Receipt Date: 20190225
  Transmission Date: 20190417
  Serious: Yes (Life-Threatening, Other)
  Sender: FDA-Public Use
  Company Number: JP-SHIRE-JP201831208

PATIENT

DRUGS (4)
  1. INTUNIV [Suspect]
     Active Substance: GUANFACINE HYDROCHLORIDE
     Dosage: 2 MG, 1X/DAY:QD
     Dates: start: 201808
  2. INTUNIV [Suspect]
     Active Substance: GUANFACINE HYDROCHLORIDE
     Indication: ATTENTION DEFICIT/HYPERACTIVITY DISORDER
     Dosage: 1 MG, 1X/DAY:QD
     Route: 048
     Dates: start: 20180524
  3. CONCERTA [Concomitant]
     Active Substance: METHYLPHENIDATE HYDROCHLORIDE
     Dosage: 36 MILLIGRAM, 1X/DAY:QD
     Route: 048
     Dates: start: 20160311
  4. CONCERTA [Concomitant]
     Active Substance: METHYLPHENIDATE HYDROCHLORIDE
     Indication: ATTENTION DEFICIT/HYPERACTIVITY DISORDER
     Dosage: 27 MG, 1X/DAY:QD
     Route: 048
     Dates: end: 201808

REACTIONS (2)
  - Incorrect dosage administered [Unknown]
  - Partial seizures [Recovering/Resolving]

NARRATIVE: CASE EVENT DATE: 201808
